FAERS Safety Report 19854390 (Version 1)
Quarter: 2021Q3

REPORT INFORMATION
  Report Type: Report from Study
  Country: None (occurrence: FR)
  Receive Date: 20210920
  Receipt Date: 20210920
  Transmission Date: 20211014
  Serious: Yes (Hospitalization)
  Sender: FDA-Public Use
  Company Number: FR-ABBVIE-21K-056-4081985-00

PATIENT
  Age: 34 Year
  Sex: Female

DRUGS (2)
  1. HUMIRA [Suspect]
     Active Substance: ADALIMUMAB
     Indication: CROHN^S DISEASE
     Route: 058
     Dates: end: 202105
  2. HUMIRA [Suspect]
     Active Substance: ADALIMUMAB
     Route: 058
     Dates: start: 20210507

REACTIONS (10)
  - Alopecia [Not Recovered/Not Resolved]
  - Injection site haemorrhage [Recovered/Resolved]
  - Inflammation [Unknown]
  - Fatigue [Recovered/Resolved]
  - Abdominal pain upper [Unknown]
  - Injection site reaction [Recovered/Resolved]
  - Defaecation disorder [Not Recovered/Not Resolved]
  - Malnutrition [Unknown]
  - Dehydration [Unknown]
  - Pain [Unknown]

NARRATIVE: CASE EVENT DATE: 2020
